FAERS Safety Report 5262197-3 (Version None)
Quarter: 2007Q1

REPORT INFORMATION
  Report Type: 
  Country: None (occurrence: None)
  Receive Date: 20070311
  Receipt Date: 20070228
  Transmission Date: 20070707
  Serious: Yes (Hospitalization, Other)
  Sender: FDA-Public Use
  Company Number: 2006UW07894

PATIENT
  Age: 428 Month
  Sex: Male
  Weight: 109.1 kg

DRUGS (2)
  1. SEROQUEL [Suspect]
     Indication: BIPOLAR DISORDER
     Route: 048
     Dates: start: 20000101
  2. EFFEXOR [Concomitant]

REACTIONS (2)
  - DIABETES MELLITUS [None]
  - KETOACIDOSIS [None]
